FAERS Safety Report 8481364-9 (Version None)
Quarter: 2012Q3

REPORT INFORMATION
  Report Type: 
  Country: None (occurrence: None)
  Receive Date: 20120702
  Receipt Date: 20120625
  Transmission Date: 20120928
  Serious: Yes (Other)
  Sender: FDA-Public Use
  Company Number: ZA-B.I. PHARMACEUTICALS,INC./RIDGEFIELD-2012-AP-00523ZA

PATIENT
  Sex: Male

DRUGS (3)
  1. THEOPHYLLINE [Concomitant]
  2. FORVENT [Suspect]
     Dates: start: 20120615, end: 20120625
  3. SALMETEROL [Concomitant]
     Dosage: ONE PUFF TWICE DAILY

REACTIONS (1)
  - BLINDNESS [None]
